FAERS Safety Report 4987287-1 (Version None)
Quarter: 2006Q2

REPORT INFORMATION
  Report Type: 
  Country: None (occurrence: None)
  Receive Date: 20060501
  Receipt Date: 20051215
  Transmission Date: 20061013
  Serious: Yes (Hospitalization, Disabling)
  Sender: FDA-Public Use
  Company Number: US-MERCK-0512USA02546

PATIENT
  Age: 62 Year
  Sex: Male
  Weight: 125 kg

DRUGS (14)
  1. VIOXX [Suspect]
     Indication: ARTHRITIS
     Route: 048
     Dates: start: 20000101, end: 20031101
  2. ALLEGRA [Concomitant]
     Indication: HYPERSENSITIVITY
     Route: 065
  3. FUROSEMIDE [Concomitant]
     Indication: FLUID RETENTION
     Route: 065
     Dates: start: 19970101, end: 20030101
  4. PRILOSEC [Concomitant]
     Indication: DYSPEPSIA
     Route: 065
  5. FLOMAX (MORNIFLUMATE) [Concomitant]
     Indication: PROSTATE EXAMINATION ABNORMAL
     Route: 065
  6. NITROGLYCERIN [Concomitant]
     Indication: HYPERTENSION
     Route: 065
     Dates: start: 19970101, end: 20030101
  7. DOXAZOSIN MESYLATE [Concomitant]
     Indication: HYPERTENSION
     Route: 065
     Dates: start: 20030130, end: 20050601
  8. PROSCAR [Concomitant]
     Indication: PROSTATE EXAMINATION ABNORMAL
     Route: 065
  9. CARDURA [Concomitant]
     Indication: HYPERTENSION
     Route: 065
     Dates: start: 19990101, end: 20050601
  10. POTASSIUM CHLORIDE [Concomitant]
     Indication: HYPOKALAEMIA
     Route: 065
     Dates: start: 20030206, end: 20041124
  11. TOPROL-XL [Concomitant]
     Indication: HYPERTENSION
     Route: 065
     Dates: start: 20010101, end: 20040101
  12. CORDAN [Concomitant]
     Indication: SKIN DISORDER
     Route: 065
  13. OMEPRAZOLE [Concomitant]
     Indication: DYSPEPSIA
     Route: 065
  14. LIPITOR [Concomitant]
     Indication: BLOOD CHOLESTEROL INCREASED
     Route: 065
     Dates: start: 20031101

REACTIONS (15)
  - ACUTE MYOCARDIAL INFARCTION [None]
  - ANGINA PECTORIS [None]
  - ATRIOVENTRICULAR BLOCK FIRST DEGREE [None]
  - CARDIAC DISORDER [None]
  - CARDIOMYOPATHY [None]
  - CELLULITIS [None]
  - CHEST PAIN [None]
  - CHOLELITHIASIS [None]
  - CORONARY ARTERY DISEASE [None]
  - CORONARY ARTERY STENOSIS [None]
  - GALLBLADDER DISORDER [None]
  - HYPERLIPIDAEMIA [None]
  - ISCHAEMIC CARDIOMYOPATHY [None]
  - ULCER [None]
  - VERTEBROBASILAR INSUFFICIENCY [None]
